FAERS Safety Report 5294520-8 (Version None)
Quarter: 2007Q2

REPORT INFORMATION
  Report Type: 
  Country: None (occurrence: None)
  Receive Date: 20070406
  Receipt Date: 20070322
  Transmission Date: 20071010
  Serious: Yes (Hospitalization)
  Sender: FDA-Public Use
  Company Number: DSA_29660_2007

PATIENT
  Age: 65 Year
  Sex: Male

DRUGS (11)
  1. CARDIZEM CD [Suspect]
     Indication: HEART RATE INCREASED
     Dosage: 120 MG Q DAY PO
     Route: 048
  2. CARDIZEM CD [Suspect]
     Indication: HEART RATE INCREASED
     Dosage: 120 MG PRN PO
     Route: 048
     Dates: start: 20050101, end: 20070101
  3. VIAGRA [Suspect]
     Indication: ERECTILE DYSFUNCTION
     Dosage: 50 MG PRN PO
     Route: 048
     Dates: start: 20010101
  4. ZITHROMAX [Suspect]
     Indication: BRONCHITIS
     Dosage: DF PO
     Route: 048
     Dates: start: 20070201, end: 20070101
  5. RITALIN [Suspect]
     Dosage: DF PO
     Route: 048
  6. CAFFEINE [Suspect]
     Dosage: DF
  7. LEVOTHYROXINE SODIUM [Concomitant]
  8. CLONAZEPAM [Concomitant]
  9. COZAAR [Concomitant]
  10. MULTI-VITAMINS [Concomitant]
  11. ACETYLSALICYLIC ACID SRT [Concomitant]

REACTIONS (10)
  - ATRIAL FIBRILLATION [None]
  - BRONCHITIS [None]
  - DEHYDRATION [None]
  - DRUG WITHDRAWAL SYNDROME [None]
  - EJACULATION FAILURE [None]
  - FLUSHING [None]
  - HEART RATE DECREASED [None]
  - HEART RATE IRREGULAR [None]
  - NO THERAPEUTIC RESPONSE [None]
  - PNEUMONIA [None]
